FAERS Safety Report 4906169-4 (Version None)
Quarter: 2006Q1

REPORT INFORMATION
  Report Type: 
  Country: None (occurrence: None)
  Receive Date: 20060207
  Receipt Date: 20060207
  Transmission Date: 20060701
  Serious: Yes (Hospitalization)
  Sender: FDA-Public Use
  Company Number: None

PATIENT
  Age: 45 Year
  Sex: Female
  Weight: 49.8957 kg

DRUGS (3)
  1. AVASTIN [Suspect]
     Indication: RENAL CELL CARCINOMA STAGE UNSPECIFIED
     Dosage: 510 MG IV
     Route: 042
     Dates: start: 20060109
  2. AVASTIN [Suspect]
     Indication: RENAL CELL CARCINOMA STAGE UNSPECIFIED
     Dosage: 510 MG IV
     Route: 042
     Dates: start: 20060123
  3. IL2 [Suspect]
     Indication: RENAL CELL CARCINOMA STAGE UNSPECIFIED
     Dosage: 2 MG Q 8 HRS IV
     Route: 042
     Dates: start: 20060123, end: 20060127

REACTIONS (6)
  - HAEMATOCRIT DECREASED [None]
  - HAEMOGLOBIN DECREASED [None]
  - OCCULT BLOOD POSITIVE [None]
  - PETECHIAE [None]
  - PLATELET COUNT DECREASED [None]
  - ULCER [None]
